FAERS Safety Report 5916770-7 (Version None)
Quarter: 2008Q4

REPORT INFORMATION
  Report Type: 
  Country: None (occurrence: None)
  Receive Date: 20081009
  Receipt Date: 20080926
  Transmission Date: 20090506
  Serious: Yes (Hospitalization)
  Sender: FDA-Public Use
  Company Number: 2008002515

PATIENT
  Sex: Male
  Weight: 61.5 kg

DRUGS (2)
  1. ERLOTINIB (ERLOTINIB) (TABLET) (ERLOTINIB) [Suspect]
     Indication: BILE DUCT CANCER
     Dosage: (150 MG, QD), ORAL
     Route: 048
     Dates: start: 20070828
  2. BEVACIZUMAB (INJECTION FOR INFUSION) [Suspect]
     Indication: BILE DUCT CANCER
     Dosage: (5 MG/KG, DAYS 1 AND 15), INTRAVENOUS
     Route: 042
     Dates: start: 20070828

REACTIONS (5)
  - ABDOMINAL PAIN UPPER [None]
  - FEELING ABNORMAL [None]
  - OESOPHAGEAL RUPTURE [None]
  - PNEUMOMEDIASTINUM [None]
  - PNEUMOTHORAX [None]
